FAERS Safety Report 19291463 (Version 2)
Quarter: 2021Q2

REPORT INFORMATION
  Report Type: Spontaneous
  Country: FR (occurrence: FR)
  Receive Date: 20210523
  Receipt Date: 20210527
  Transmission Date: 20210717
  Serious: Yes (Life-Threatening)
  Sender: FDA-Public Use
  Company Number: FR-TEVA-2021-FR-1913101

PATIENT
  Age: 36 Year
  Sex: Female

DRUGS (6)
  1. XYLOCAINE ADR [Concomitant]
     Indication: ANALGESIC THERAPY
     Dosage: 20 MG
     Route: 003
     Dates: start: 20210419, end: 20210419
  2. XYLOCAINE ADR [EPINEPHRINE/LIDOCAINE HYDROCHLORIDE] [Suspect]
     Active Substance: EPINEPHRINE\LIDOCAINE HYDROCHLORIDE
     Indication: ANALGESIC THERAPY
     Dosage: 40 MG
     Route: 008
     Dates: start: 20210419, end: 20210419
  3. ANGUSTA [Suspect]
     Active Substance: MISOPROSTOL
     Indication: FAILED INDUCTION OF LABOUR
     Dosage: 4 DF
     Route: 048
     Dates: start: 20210419, end: 20210419
  4. SUFENTANIL [Suspect]
     Active Substance: SUFENTANIL
     Indication: ANALGESIC THERAPY
     Dosage: 7 MG
     Route: 008
     Dates: start: 20210419, end: 20210419
  5. ONDANSETRON [Suspect]
     Active Substance: ONDANSETRON
     Indication: ANTIEMETIC SUPPORTIVE CARE
     Dosage: 4 MG
     Route: 042
     Dates: start: 20210419, end: 20210419
  6. VACAINE [ROPIVACAINE HYDROCHLORIDE] [Suspect]
     Active Substance: ROPIVACAINE HYDROCHLORIDE
     Indication: ANALGESIC THERAPY
     Dosage: 38.4 MG
     Route: 008
     Dates: start: 20210419, end: 20210419

REACTIONS (2)
  - Uterine hypotonus [Recovered/Resolved with Sequelae]
  - Postpartum haemorrhage [Recovered/Resolved with Sequelae]

NARRATIVE: CASE EVENT DATE: 20210419
